FAERS Safety Report 8778570 (Version 1)
Quarter: 2012Q4

REPORT INFORMATION
  Report Type: Report from Study
  Country: US (occurrence: US)
  Receive Date: 20120912
  Receipt Date: 20120912
  Transmission Date: 20130627
  Serious: Yes (Other)
  Sender: FDA-Public Use
  Company Number: US-CELGENEUS-163-21880-12090115

PATIENT
  Age: 66 Year
  Sex: Male
  Weight: 70.82 kg

DRUGS (5)
  1. REVLIMID [Suspect]
     Indication: MULTIPLE MYELOMA
     Dosage: 25 Milligram
     Route: 048
     Dates: start: 20100407
  2. REVLIMID [Suspect]
     Dosage: 10 Milligram
     Route: 048
  3. REVLIMID [Suspect]
     Dosage: 15 Milligram
     Route: 048
  4. REVLIMID [Suspect]
     Dosage: 10 Milligram
     Route: 048
     Dates: end: 20111206
  5. DEXAMETHASONE [Suspect]
     Indication: MULTIPLE MYELOMA
     Dosage: 40 Milligram
     Route: 065
     Dates: start: 20100407

REACTIONS (1)
  - Erythroleukaemia [Unknown]
